FAERS Safety Report 6310695-3 (Version None)
Quarter: 2009Q3

REPORT INFORMATION
  Report Type: 
  Country: None (occurrence: None)
  Receive Date: 20090814
  Receipt Date: 20090811
  Transmission Date: 20100115
  Serious: Yes (Hospitalization)
  Sender: FDA-Public Use
  Company Number: ES-MERCK-0908ESP00007

PATIENT
  Age: 85 Year
  Sex: Female

DRUGS (6)
  1. MODURETIC 5-50 [Suspect]
     Indication: CARDIAC FAILURE
     Route: 048
     Dates: end: 20080727
  2. ENALAPRIL MALEATE [Concomitant]
     Indication: HYPERTENSION
     Route: 048
     Dates: end: 20080718
  3. OMEPRAZOLE [Concomitant]
     Indication: PROPHYLAXIS
     Route: 048
  4. MELOXICAM [Concomitant]
     Indication: OSTEOPOROSIS
     Route: 048
     Dates: end: 20080718
  5. NEBIVOLOL HYDROCHLORIDE [Concomitant]
     Indication: HYPERTENSION
     Route: 048
  6. VENLAFAXINE HYDROCHLORIDE [Suspect]
     Route: 048

REACTIONS (2)
  - DRUG INTERACTION [None]
  - HYPONATRAEMIA [None]
